FAERS Safety Report 4491916-9 (Version None)
Quarter: 2004Q4

REPORT INFORMATION
  Report Type: 
  Country: None (occurrence: None)
  Receive Date: 20041029
  Receipt Date: 20041029
  Transmission Date: 20050328
  Serious: Yes (Hospitalization)
  Sender: FDA-Public Use
  Company Number: None

PATIENT
  Age: 68 Year
  Sex: Male
  Weight: 80 kg

DRUGS (14)
  1. FUROSEMIDE [Suspect]
     Indication: HYPERTENSION
     Dosage: 20 MG BID ORAL
     Route: 048
     Dates: start: 20031028, end: 20040112
  2. LISINOPRIL [Suspect]
     Indication: HYPERTENSION
     Dosage: 10 MG QD ORAL
     Route: 048
     Dates: start: 20011016, end: 20040112
  3. ASPIRIN [Concomitant]
  4. FINASTERIDE [Concomitant]
  5. METOPROLOL SUCCINATE [Concomitant]
  6. SIMVASTATIN [Concomitant]
  7. TAMSULOSIN [Concomitant]
  8. VIT E [Concomitant]
  9. IBUPROFEN [Concomitant]
  10. TYLENOL [Concomitant]
  11. QUETIAPINE [Concomitant]
  12. DIVALPROEX SODIUM [Concomitant]
  13. GUAIFENESIN [Concomitant]
  14. ALBUTEROL [Concomitant]

REACTIONS (7)
  - AGITATION [None]
  - BLOOD CREATININE INCREASED [None]
  - HAEMOPTYSIS [None]
  - PRODUCTIVE COUGH [None]
  - RESPIRATORY TRACT CONGESTION [None]
  - SCHIZOPHRENIA, PARANOID TYPE [None]
  - SPUTUM ABNORMAL [None]
